FAERS Safety Report 16119458 (Version 1)
Quarter: 2019Q1

REPORT INFORMATION
  Report Type: Report from Study
  Country: BR (occurrence: BR)
  Receive Date: 20190326
  Receipt Date: 20190326
  Transmission Date: 20190418
  Serious: Yes (Hospitalization)
  Sender: FDA-Public Use
  Company Number: BR-B.I. PHARMACEUTICALS,INC./RIDGEFIELD-2019-BI-012304

PATIENT
  Sex: Female
  Weight: 92 kg

DRUGS (4)
  1. ATENSINA [Suspect]
     Active Substance: CLONIDINE
     Indication: MUSCLE ATROPHY
  2. ATENSINA [Suspect]
     Active Substance: CLONIDINE
     Indication: HYPERTENSION
     Route: 048
     Dates: start: 2011, end: 201804
  3. CLOROTIAZIDA [Concomitant]
     Active Substance: CHLOROTHIAZIDE
     Indication: FLUID RETENTION
     Route: 048
  4. MICARDIS [Concomitant]
     Active Substance: TELMISARTAN
     Indication: HYPERTENSION
     Route: 048

REACTIONS (1)
  - Ill-defined disorder [Recovered/Resolved]
